FAERS Safety Report 5554899-6 (Version None)
Quarter: 2007Q4

REPORT INFORMATION
  Report Type: 
  Country: None (occurrence: None)
  Receive Date: 20071211
  Receipt Date: 20071127
  Transmission Date: 20080405
  Serious: Yes (Other)
  Sender: FDA-Public Use
  Company Number: DSA_30502_2007

PATIENT
  Sex: Female
  Weight: 86.1834 kg

DRUGS (6)
  1. VASOTEC [Suspect]
     Indication: HYPERTENSION
     Dosage: 5 MG QID ORAL
     Route: 048
     Dates: start: 20070825, end: 20070828
  2. VASOTEC [Suspect]
     Indication: HYPERTENSION
     Dosage: 5 MG QID ORAL
     Route: 048
     Dates: start: 20030101, end: 20070825
  3. VASOTEC [Suspect]
     Indication: HYPERTENSION
     Dosage: 5 MG BID ORAL
     Route: 048
     Dates: start: 19880101, end: 20030101
  4. DYAZIDE [Concomitant]
  5. CATAPRES [Concomitant]
  6. NORVASC [Concomitant]

REACTIONS (5)
  - BLOOD PRESSURE INCREASED [None]
  - DRUG INEFFECTIVE [None]
  - FEELING ABNORMAL [None]
  - PALPITATIONS [None]
  - TREMOR [None]
